FAERS Safety Report 4918755-6 (Version None)
Quarter: 2006Q1

REPORT INFORMATION
  Report Type: 
  Country: None (occurrence: None)
  Receive Date: 20060222
  Receipt Date: 20060110
  Transmission Date: 20060701
  Serious: Yes (Hospitalization)
  Sender: FDA-Public Use
  Company Number: US-GILEAD-2006-0009099

PATIENT
  Age: 46 Year
  Sex: Male
  Weight: 78.3 kg

DRUGS (8)
  1. EMTRICITABINE/TENOFOVIR DF [Suspect]
     Indication: HIV INFECTION
     Route: 048
     Dates: start: 20051208, end: 20051227
  2. EFAVIRENZ [Suspect]
     Indication: HIV INFECTION
     Route: 048
     Dates: start: 20051208, end: 20051227
  3. ABACAVIR/LAMIVUDINE PLACEBO [Suspect]
     Indication: HIV INFECTION
     Route: 048
  4. VICODIN [Concomitant]
     Dosage: 1-2 TABLETS
     Route: 048
     Dates: start: 20051021
  5. MIRTAZAPINE [Concomitant]
     Dosage: 2 TABLETS
     Route: 048
     Dates: start: 20051021
  6. CITALOPRAM [Concomitant]
     Dates: start: 20051021
  7. TRIMETHOPRIM + SULFAMETHOXAZOLE [Concomitant]
     Indication: RASH
     Dates: start: 20051121, end: 20051205
  8. PENTAMIDINE [Concomitant]
     Dates: start: 20051208

REACTIONS (10)
  - AIDS DEMENTIA COMPLEX [None]
  - BLOOD SODIUM DECREASED [None]
  - CONFUSIONAL STATE [None]
  - COORDINATION ABNORMAL [None]
  - DELIRIUM [None]
  - DIARRHOEA [None]
  - HYPONATRAEMIA [None]
  - ORAL INTAKE REDUCED [None]
  - PYREXIA [None]
  - VOMITING [None]
